FAERS Safety Report 25197490 (Version 1)
Quarter: 2025Q2

REPORT INFORMATION
  Report Type: Spontaneous
  Country: DE (occurrence: DE)
  Receive Date: 20250415
  Receipt Date: 20250415
  Transmission Date: 20250717
  Serious: Yes (Death, Hospitalization, Disabling, Other)
  Sender: AUROBINDO
  Company Number: DE-002147023-NVSC2023DE133076

PATIENT
  Age: 76 Year
  Sex: Female
  Weight: 35 kg

DRUGS (2)
  1. LETROZOLE [Suspect]
     Active Substance: LETROZOLE
     Indication: Breast cancer
     Dosage: 2.5 MILLIGRAM, ONCE A DAY
     Route: 048
     Dates: start: 20221101, end: 20230412
  2. PALBOCICLIB [Suspect]
     Active Substance: PALBOCICLIB
     Indication: Breast cancer
     Dosage: 125 MILLIGRAM, ONCE A DAY, (125 MG, QD (DAILY FROM DAY 1 TO DAY 21, EVERY 28 DAY CYCLE)
     Route: 048
     Dates: start: 20221117, end: 20230307

REACTIONS (7)
  - Breast cancer [Fatal]
  - Malignant neoplasm progression [Fatal]
  - Vomiting [Fatal]
  - Diarrhoea [Recovering/Resolving]
  - Subileus [Unknown]
  - Intestinal stenosis [Unknown]
  - Weight decreased [Unknown]

NARRATIVE: CASE EVENT DATE: 20230327
